FAERS Safety Report 4603101-8 (Version None)
Quarter: 2005Q1

REPORT INFORMATION
  Report Type: 
  Country: None (occurrence: None)
  Receive Date: 20050307
  Receipt Date: 20041214
  Transmission Date: 20050727
  Serious: Yes (Other)
  Sender: FDA-Public Use
  Company Number: 2005021254

PATIENT
  Age: 68 Year
  Sex: Female

DRUGS (5)
  1. CELEBREX [Suspect]
     Indication: OSTEOARTHRITIS
     Dosage: 200 MG, ORAL
     Route: 048
     Dates: start: 20011212, end: 20041026
  2. GLUCOSAMINE (GLUCOSAMINE) [Concomitant]
  3. APOREX (DEXTROPROPOXYPHENE HYDROCHLORIDE, PARACETAMOL) [Concomitant]
  4. DILTIAZEM [Concomitant]
  5. DESLORATADINE (DESLORATADINE) [Concomitant]

REACTIONS (1)
  - INCREASED TENDENCY TO BRUISE [None]
